FAERS Safety Report 13106170 (Version 1)
Quarter: 2017Q1

REPORT INFORMATION
  Report Type: Spontaneous
  Country: US (occurrence: US)
  Receive Date: 20170111
  Receipt Date: 20170111
  Transmission Date: 20170428
  Serious: No
  Sender: FDA-Public Use
  Company Number: PHEH2017US001175

PATIENT
  Age: 39 Year
  Sex: Female

DRUGS (1)
  1. COSENTYX [Suspect]
     Active Substance: SECUKINUMAB
     Indication: PSORIASIS
     Dosage: UNK, EVERY 4 WEEKS
     Route: 065
     Dates: start: 20160804

REACTIONS (1)
  - Vulvovaginal dryness [Unknown]

NARRATIVE: CASE EVENT DATE: 20160804
